FAERS Safety Report 4490712-6 (Version None)
Quarter: 2004Q4

REPORT INFORMATION
  Report Type: 
  Country: None (occurrence: None)
  Receive Date: 20041102
  Receipt Date: 20041015
  Transmission Date: 20050328
  Serious: Yes (Death, Hospitalization)
  Sender: FDA-Public Use
  Company Number: ES-ROCHE-383366

PATIENT
  Age: 79 Year
  Sex: Male
  Weight: 60 kg

DRUGS (3)
  1. CAPECITABINE [Suspect]
     Dosage: ACTUAL DOSE 1800MG TWICE DAILY
     Route: 048
     Dates: start: 20040831, end: 20041012
  2. BLINDED BEVACIZUMAB [Suspect]
     Route: 042
     Dates: start: 20040831, end: 20040928
  3. OXALIPLATIN [Suspect]
     Dosage: ACTUAL DOSE 223MG
     Route: 042
     Dates: start: 20040831, end: 20040928

REACTIONS (4)
  - ACUTE PRERENAL FAILURE [None]
  - DIARRHOEA [None]
  - MUCOSAL INFLAMMATION [None]
  - PULMONARY EMBOLISM [None]
